FAERS Safety Report 12348873 (Version 1)
Quarter: 2016Q2

REPORT INFORMATION
  Report Type: Report from Study
  Country: DE (occurrence: DE)
  Receive Date: 20160509
  Receipt Date: 20160509
  Transmission Date: 20160815
  Serious: Yes (Hospitalization)
  Sender: FDA-Public Use
  Company Number: DE-BIOGEN-2016BI00233806

PATIENT
  Age: 64 Year
  Sex: Male
  Weight: 71 kg

DRUGS (2)
  1. PREGABALIN. [Concomitant]
     Active Substance: PREGABALIN
     Indication: DEPRESSION
     Route: 065
     Dates: start: 2014
  2. PLEGRIDY [Suspect]
     Active Substance: PEGINTERFERON BETA-1A
     Indication: MULTIPLE SCLEROSIS
     Route: 058
     Dates: start: 20150528

REACTIONS (4)
  - Coma [Recovered/Resolved]
  - Hypokalaemia [Not Recovered/Not Resolved]
  - Abdominal pain [Not Recovered/Not Resolved]
  - Retrograde amnesia [Recovered/Resolved]

NARRATIVE: CASE EVENT DATE: 2016
